FAERS Safety Report 8713274 (Version 2)
Quarter: 2015Q1

REPORT INFORMATION
  Report Type: Report from Study
  Country: US (occurrence: US)
  Receive Date: 20120808
  Receipt Date: 20150330
  Transmission Date: 20150721
  Serious: Yes (Death)
  Sender: FDA-Public Use
  Company Number: US-ROCHE-1097856

PATIENT
  Age: 49 Year
  Sex: Male

DRUGS (15)
  1. ASPIRIN. [Concomitant]
     Active Substance: ASPIRIN
     Route: 065
  2. COMPAZINE [Concomitant]
     Active Substance: PROCHLORPERAZINE MALEATE
     Route: 065
  3. MORPHINE SULFATE. [Concomitant]
     Active Substance: MORPHINE SULFATE
     Route: 042
  4. PAVULON [Concomitant]
     Active Substance: PANCURONIUM BROMIDE
     Route: 065
  5. TRIDIL [Concomitant]
     Active Substance: NITROGLYCERIN
     Route: 065
  6. ATROPINE [Concomitant]
     Active Substance: ATROPINE
  7. ACTIVASE [Suspect]
     Active Substance: ALTEPLASE
     Indication: ACUTE MYOCARDIAL INFARCTION
     Route: 065
  8. LIDOCAINE. [Concomitant]
     Active Substance: LIDOCAINE
     Route: 065
  9. ACTIVASE [Suspect]
     Active Substance: ALTEPLASE
     Route: 065
  10. PROVENTIL [Concomitant]
     Active Substance: ALBUTEROL
  11. LASIX [Concomitant]
     Active Substance: FUROSEMIDE
  12. ACTIVASE [Suspect]
     Active Substance: ALTEPLASE
     Route: 065
  13. DIGOXIN. [Concomitant]
     Active Substance: DIGOXIN
     Route: 048
  14. LOPRESSOR [Concomitant]
     Active Substance: METOPROLOL TARTRATE
     Route: 065
  15. DOPAMINE [Concomitant]
     Active Substance: DOPAMINE\DOPAMINE HYDROCHLORIDE
     Route: 065

REACTIONS (4)
  - Anxiety [Unknown]
  - Metabolic acidosis [Unknown]
  - Insomnia [Unknown]
  - Death [Fatal]

NARRATIVE: CASE EVENT DATE: 19910606
